FAERS Safety Report 5055615-7 (Version None)
Quarter: 2006Q3

REPORT INFORMATION
  Report Type: 
  Country: None (occurrence: None)
  Receive Date: 20060719
  Receipt Date: 20060406
  Transmission Date: 20061208
  Serious: No
  Sender: FDA-Public Use
  Company Number: US-AMGEN-US171201

PATIENT
  Sex: Female

DRUGS (8)
  1. EPOGEN [Suspect]
     Indication: DIALYSIS
     Dates: start: 20030901
  2. MEDICINALPRODUCT NOT SPECIFIED BY SENDER [Concomitant]
     Route: 048
     Dates: start: 20030918
  3. MEDICINALPRODUCT NOT SPECIFIED BY SENDER [Concomitant]
     Route: 058
     Dates: start: 20050303
  4. MEDICINALPRODUCT NOT SPECIFIED BY SENDER [Concomitant]
  5. MEDICINALPRODUCT NOT SPECIFIED BY SENDER [Concomitant]
     Route: 048
     Dates: start: 20030918
  6. MEDICINALPRODUCT NOT SPECIFIED BY SENDER [Concomitant]
     Route: 048
     Dates: start: 20030918
  7. MEDICINALPRODUCT NOT SPECIFIED BY SENDER [Concomitant]
     Route: 048
     Dates: start: 20050915
  8. MEDICINALPRODUCT NOT SPECIFIED BY SENDER [Concomitant]

REACTIONS (2)
  - GOUT [None]
  - THERAPEUTIC RESPONSE DECREASED [None]
